FAERS Safety Report 7658531-7 (Version None)
Quarter: 2011Q3

REPORT INFORMATION
  Report Type: 
  Country: None (occurrence: None)
  Receive Date: 20110805
  Receipt Date: 20110721
  Transmission Date: 20111222
  Serious: Yes (Hospitalization, Other)
  Sender: FDA-Public Use
  Company Number: US-ELI_LILLY_AND_COMPANY-US201107002188

PATIENT
  Sex: Female

DRUGS (7)
  1. EVISTA [Suspect]
     Indication: OSTEOPENIA
     Dosage: 60 MG, UNK
     Dates: end: 20051101
  2. GLUCOPHAGE [Concomitant]
  3. VYTORIN [Concomitant]
  4. ASPIRIN [Concomitant]
  5. FORTEO [Suspect]
     Indication: OSTEOPOROSIS
     Dosage: 20 UG, QD
     Dates: start: 20110624
  6. SYNTHROID [Concomitant]
  7. VITAMIN B-12 [Concomitant]
     Dosage: UNK, MONTHLY (1/M)

REACTIONS (11)
  - HIP FRACTURE [None]
  - ARTHRALGIA [None]
  - DIZZINESS [None]
  - TOOTH DISORDER [None]
  - CLAVICLE FRACTURE [None]
  - BACK PAIN [None]
  - OFF LABEL USE [None]
  - BONE PAIN [None]
  - NECK PAIN [None]
  - MUSCULOSKELETAL PAIN [None]
  - LOOSE TOOTH [None]
